FAERS Safety Report 8186022-6 (Version None)
Quarter: 2012Q1

REPORT INFORMATION
  Report Type: 
  Country: None (occurrence: None)
  Receive Date: 20120306
  Receipt Date: 20120224
  Transmission Date: 20120608
  Serious: Yes (Hospitalization)
  Sender: FDA-Public Use
  Company Number: BR-BIOGENIDEC-2012BI006518

PATIENT
  Age: 59 Year
  Sex: Male

DRUGS (1)
  1. TYSABRI [Suspect]
     Indication: MULTIPLE SCLEROSIS
     Route: 042
     Dates: start: 20111001, end: 20120123

REACTIONS (4)
  - HALLUCINATION [None]
  - ENCEPHALITIS [None]
  - PSYCHOTIC DISORDER [None]
  - SENSORY DISTURBANCE [None]
